FAERS Safety Report 9972611 (Version 1)
Quarter: 2014Q1

REPORT INFORMATION
  Report Type: Report from Study
  Country: US (occurrence: US)
  Receive Date: 20140306
  Receipt Date: 20140306
  Transmission Date: 20141002
  Serious: No
  Sender: FDA-Public Use
  Company Number: US-ABBVIE-13P-163-1154134-00

PATIENT
  Age: 46 Year
  Sex: Female

DRUGS (10)
  1. HUMIRA [Suspect]
     Indication: PSORIASIS
     Dosage: LOADING DOSE
     Dates: start: 20131001
  2. METFORMIN [Concomitant]
     Indication: TYPE 2 DIABETES MELLITUS
  3. LOSARTAN [Concomitant]
     Indication: NUTRITIONAL SUPPLEMENTATION
     Dosage: 50MG DAILY
  4. OMEGA 3 [Concomitant]
     Indication: NUTRITIONAL SUPPLEMENTATION
  5. OMEGA 6 [Concomitant]
     Indication: NUTRITIONAL SUPPLEMENTATION
  6. OMEGA 9 FATTY ACIDS [Concomitant]
     Indication: NUTRITIONAL SUPPLEMENTATION
  7. VITAMIN E [Concomitant]
     Indication: NUTRITIONAL SUPPLEMENTATION
  8. VITAMIN D [Concomitant]
     Indication: VITAMIN SUPPLEMENTATION
  9. MULTIVITAMIN [Concomitant]
     Indication: VITAMIN SUPPLEMENTATION
  10. VITAMIN C [Concomitant]
     Indication: VITAMIN SUPPLEMENTATION
     Dosage: 1000MG DAILY

REACTIONS (1)
  - Injection site pain [Recovered/Resolved]
